FAERS Safety Report 9420133 (Version 1)
Quarter: 2013Q4

REPORT INFORMATION
  Report Type: Spontaneous
  Country: US (occurrence: None)
  Receive Date: 20130724
  Receipt Date: 20130724
  Transmission Date: 20140711
  Serious: Yes (Hospitalization)
  Sender: FDA-Public Use
  Company Number: None

PATIENT
  Sex: 0

DRUGS (3)
  1. SUPERSMILE PROFESSIONAL WHITENING TOOTHPASE [Suspect]
     Dosage: ONE  ORAL  APPLICATION
     Route: 048
     Dates: start: 20130522
  2. LORAZEPAM [Concomitant]
  3. PROZAC [Concomitant]

REACTIONS (4)
  - Hypersensitivity [None]
  - Eye pruritus [None]
  - Ocular hyperaemia [None]
  - Pharyngeal oedema [None]
